FAERS Safety Report 4278828-0 (Version None)
Quarter: 2004Q1

REPORT INFORMATION
  Report Type: 
  Country: None (occurrence: None)
  Receive Date: 20040126
  Receipt Date: 20040116
  Transmission Date: 20041129
  Serious: Yes (Other)
  Sender: FDA-Public Use
  Company Number: 200410369US

PATIENT
  Sex: Female

DRUGS (2)
  1. TAXOTERE [Suspect]
  2. UNKNOWN DRUG [Concomitant]
     Dosage: DOSE: UNK

REACTIONS (1)
  - ADVERSE EVENT [None]
